FAERS Safety Report 13234004 (Version 3)
Quarter: 2017Q2

REPORT INFORMATION
  Report Type: Spontaneous
  Country: US (occurrence: US)
  Receive Date: 20170215
  Receipt Date: 20170503
  Transmission Date: 20170830
  Serious: No
  Sender: FDA-Public Use
  Company Number: US-BRISTOL-MYERS SQUIBB COMPANY-BMS-2017-007982

PATIENT
  Age: 75 Year
  Sex: Female

DRUGS (1)
  1. ELIQUIS [Suspect]
     Active Substance: APIXABAN
     Indication: DEEP VEIN THROMBOSIS
     Dosage: 5 MG, BID
     Route: 048
     Dates: start: 20170105, end: 20170115

REACTIONS (9)
  - Pharyngeal oedema [Recovered/Resolved]
  - Glossodynia [Unknown]
  - Dysphagia [Unknown]
  - Lip swelling [Recovered/Resolved]
  - Lip dry [Recovered/Resolved]
  - Swelling face [Unknown]
  - Oropharyngeal pain [Unknown]
  - Tongue erythema [Recovered/Resolved]
  - Hypersensitivity [Unknown]

NARRATIVE: CASE EVENT DATE: 20170112
